FAERS Safety Report 19130392 (Version 2)
Quarter: 2021Q2

REPORT INFORMATION
  Report Type: Spontaneous
  Country: US (occurrence: US)
  Receive Date: 20210413
  Receipt Date: 20210524
  Transmission Date: 20210717
  Serious: Yes (Hospitalization, Other)
  Sender: FDA-Public Use
  Company Number: US-PFIZER INC-2021350761

PATIENT
  Age: 50 Year
  Sex: Female
  Weight: 69.4 kg

DRUGS (1)
  1. PREMARIN [Suspect]
     Active Substance: ESTROGENS, CONJUGATED
     Indication: HORMONE REPLACEMENT THERAPY
     Dosage: 1 G (INSERTING VAGINALLY THREE TIMES A WEEK)
     Route: 067
     Dates: start: 202001

REACTIONS (5)
  - Papillary thyroid cancer [Recovered/Resolved]
  - Frustration tolerance decreased [Unknown]
  - Device difficult to use [Unknown]
  - Off label use [Unknown]
  - Neoplasm progression [Recovered/Resolved]

NARRATIVE: CASE EVENT DATE: 2020
